FAERS Safety Report 23454884 (Version 2)
Quarter: 2024Q1

REPORT INFORMATION
  Report Type: Spontaneous
  Country: GR (occurrence: GR)
  Receive Date: 20240130
  Receipt Date: 20240214
  Transmission Date: 20240410
  Serious: No
  Sender: FDA-Public Use
  Company Number: GR-SANOFI-01912111

PATIENT
  Age: 34 Year
  Sex: Female

DRUGS (1)
  1. ARAVA [Suspect]
     Active Substance: LEFLUNOMIDE
     Indication: Rheumatoid arthritis
     Dosage: UNK
     Route: 065
     Dates: start: 2022

REACTIONS (3)
  - Abortion induced [Unknown]
  - Maternal exposure during pregnancy [Unknown]
  - Contraindicated product administered [Unknown]
